FAERS Safety Report 7787124-6 (Version None)
Quarter: 2011Q3

REPORT INFORMATION
  Report Type: 
  Country: None (occurrence: None)
  Receive Date: 20110929
  Receipt Date: 20110321
  Transmission Date: 20111222
  Serious: Yes (Other)
  Sender: FDA-Public Use
  Company Number: US-BAYER-201027125NA

PATIENT
  Age: 38 Year
  Sex: Female
  Weight: 110.66 kg

DRUGS (38)
  1. RHINOCORT [Concomitant]
     Indication: MULTIPLE ALLERGIES
     Dosage: UNK UNK, QD
     Dates: start: 20020101
  2. ACIPHEX [Concomitant]
     Indication: MULTIPLE ALLERGIES
     Dosage: 20 MG, QD
     Route: 048
  3. LOTRISONE [Concomitant]
     Dosage: UNK UNK, PRN
  4. ERY-TAB [Concomitant]
     Dosage: 333 MG, UNK
  5. CEPHALEXIN [Concomitant]
     Dosage: 500 MG, UNK
  6. YAZ [Suspect]
     Indication: POLYCYSTIC OVARIES
     Dosage: UNK
     Route: 048
     Dates: start: 20021101
  7. PATANOL [Concomitant]
  8. DIOVAN HCT [Concomitant]
     Indication: BLOOD PRESSURE ABNORMAL
     Dosage: 25 MG, QD
  9. MULTI-VITAMINS [Concomitant]
     Dosage: UNK UNK, BID
  10. IBUPROFEN [Concomitant]
  11. LISINOPRIL [Concomitant]
     Indication: HYPERTENSION
     Dosage: 5 MG, UNK
     Dates: start: 20020101
  12. JANUVIA [Concomitant]
     Indication: DIABETES MELLITUS
     Dosage: 100 MG, QD
  13. GLIPIZIDE [Concomitant]
     Dosage: UNK UNK, QD
  14. ATENOLOL [Concomitant]
     Dosage: 50 MG, UNK
  15. CIPROFLOXACIN [Concomitant]
  16. CARAFATE [Concomitant]
     Indication: ULCER
     Dosage: UNK UNK, TID
     Route: 048
  17. NEBIVOLOL HCL [Concomitant]
     Indication: UNEVALUABLE EVENT
     Dosage: 5 MG, QD
  18. PAXIL CR [Concomitant]
     Dosage: 12.5 MG, UNK
  19. AMITRIPTYLINE HCL [Concomitant]
  20. DROSPIRENONE AND ETHINYL ESTRADIOL [Suspect]
     Indication: POLYCYSTIC OVARIES
     Dosage: UNK
     Dates: start: 20080701, end: 20091101
  21. SPIRONOLACTONE [Concomitant]
     Indication: DIURETIC THERAPY
     Dosage: 25 MG, QD
     Dates: start: 20000101
  22. OLOPATADINE HYDROCHLORIDE [Concomitant]
     Indication: MULTIPLE ALLERGIES
     Dosage: UNK UNK, QD
  23. ELOCON [Concomitant]
     Indication: MULTIPLE ALLERGIES
     Dosage: UNK UNK, BID
  24. METFORMIN HCL [Concomitant]
     Indication: DIABETES MELLITUS
     Dosage: 850 MG, TID
  25. NEBIVOLOL HCL [Concomitant]
  26. CHONDROITIN W/GLUCOSAMINE [Concomitant]
     Indication: ARTHRITIS
     Dosage: UNK UNK, QD
  27. ACETAMINOPHEN AND HYDROCODONE BITARTRATE [Concomitant]
  28. PAROXETINE HCL [Concomitant]
     Dosage: 20 MG, UNK
  29. YASMIN [Suspect]
     Indication: POLYCYSTIC OVARIES
     Dosage: UNK
     Route: 048
     Dates: start: 20030801, end: 20080601
  30. BENTYL [Concomitant]
     Indication: GASTROINTESTINAL PAIN
     Dosage: 20 MG, QD
     Route: 048
  31. FEOSOL [Concomitant]
     Indication: BLOOD IRON DECREASED
     Dosage: UNK UNK, QD
  32. PAXIL [Concomitant]
     Indication: DEPRESSION
     Dosage: DAILY
     Dates: start: 20020101
  33. RESPIRATORY SYSTEM [Concomitant]
     Indication: MULTIPLE ALLERGIES
     Dosage: AS DIRECTED
     Dates: start: 20020101
  34. ALLEGRA [Concomitant]
     Indication: MULTIPLE ALLERGIES
     Dosage: 180 MG, QD
  35. ASPIRIN [Concomitant]
     Dosage: 81 MG, QD
  36. RESPIRATORY SYSTEM [Concomitant]
     Dosage: 5 MG, UNK
  37. DICYCLOMINE [Concomitant]
     Dosage: 20 MG, UNK
  38. PRILOSEC [Concomitant]
     Dosage: 40 MG, UNK

REACTIONS (13)
  - VOMITING [None]
  - HEPATOBILIARY SCAN ABNORMAL [None]
  - GASTRITIS EROSIVE [None]
  - CHOLESTEROSIS [None]
  - ABDOMINAL PAIN UPPER [None]
  - BILIARY COLIC [None]
  - OESOPHAGEAL SPASM [None]
  - BARRETT'S OESOPHAGUS [None]
  - GASTROOESOPHAGEAL REFLUX DISEASE [None]
  - NAUSEA [None]
  - FOOD INTOLERANCE [None]
  - CHOLECYSTITIS CHRONIC [None]
  - ABDOMINAL PAIN [None]
